FAERS Safety Report 20844817 (Version 1)
Quarter: 2022Q2

REPORT INFORMATION
  Report Type: Spontaneous
  Country: US (occurrence: US)
  Receive Date: 20220518
  Receipt Date: 20220518
  Transmission Date: 20220720
  Serious: Yes (Other)
  Sender: FDA-Public Use
  Company Number: US-PFIZER INC-202200661573

PATIENT
  Age: 60 Year
  Sex: Male
  Weight: 82.55 kg

DRUGS (1)
  1. ACCUPRIL [Suspect]
     Active Substance: QUINAPRIL HYDROCHLORIDE
     Indication: Blood pressure management
     Dosage: 20 MG, 1X/DAY

REACTIONS (3)
  - Neoplasm malignant [Unknown]
  - Prostate cancer [Recovered/Resolved]
  - Recalled product administered [Unknown]

NARRATIVE: CASE EVENT DATE: 20100101
